FAERS Safety Report 24019070 (Version 2)
Quarter: 2024Q3

REPORT INFORMATION
  Report Type: Spontaneous
  Country: DE (occurrence: DE)
  Receive Date: 20240627
  Receipt Date: 20240822
  Transmission Date: 20241017
  Serious: Yes (Death, Other)
  Sender: LABORATOIRES SERB
  Company Number: DE-SERB S.A.S.-2158605

PATIENT
  Age: 63 Year
  Sex: Male

DRUGS (2)
  1. CYANOKIT [Suspect]
     Active Substance: HYDROXOCOBALAMIN
     Indication: Chemical poisoning
     Route: 042
     Dates: start: 20231006, end: 20231006
  2. NexoBrid Powder and gel for gel?(Bromelains) [Concomitant]
     Route: 003
     Dates: start: 20231007, end: 20231007

REACTIONS (4)
  - Lactic acidosis [Fatal]
  - Cardiac arrest [Fatal]
  - Sinus node dysfunction [Fatal]
  - Arrhythmia [Fatal]

NARRATIVE: CASE EVENT DATE: 20231007
